FAERS Safety Report 19885605 (Version 1)
Quarter: 2021Q3

REPORT INFORMATION
  Report Type: Spontaneous
  Country: US (occurrence: US)
  Receive Date: 20210927
  Receipt Date: 20210927
  Transmission Date: 20211014
  Serious: Yes (Hospitalization, Other)
  Sender: FDA-Public Use
  Company Number: US-AMGEN-USASP2021146940

PATIENT
  Age: 31 Year
  Sex: Female

DRUGS (14)
  1. VINCRISTINE SULFATE. [Suspect]
     Active Substance: VINCRISTINE SULFATE
     Indication: ACUTE LYMPHOCYTIC LEUKAEMIA
     Dosage: 2 MILLIGRAM
     Route: 042
  2. CYCLOPHOSPHAMIDE. [Suspect]
     Active Substance: CYCLOPHOSPHAMIDE
     Indication: ACUTE LYMPHOCYTIC LEUKAEMIA
     Dosage: 150 MILLIGRAM/SQ. METER (OVER 3 HOURS TWICE A DAY ON DAYS 1?3)
     Route: 042
  3. MESNA. [Suspect]
     Active Substance: MESNA
     Indication: ACUTE LYMPHOCYTIC LEUKAEMIA
     Dosage: 300 MILLIGRAM/SQ. METER, QD (OVER 24 HOURS FOR 3 DAYS ON DAYS)
     Route: 042
  4. PEGFILGRASTIM [Suspect]
     Active Substance: PEGFILGRASTIM
     Indication: ACUTE LYMPHOCYTIC LEUKAEMIA
  5. RITUXIMAB. [Suspect]
     Active Substance: RITUXIMAB
     Indication: ACUTE LYMPHOCYTIC LEUKAEMIA
     Dosage: 375 MILLIGRAM/SQ. METER (ON DAY 1 AND DAY 8)
     Route: 042
  6. RITUXIMAB. [Suspect]
     Active Substance: RITUXIMAB
     Dosage: 375 MILLIGRAM/SQ. METER (ON DAY 2 AND DAY 4)
     Route: 042
  7. PEGFILGRASTIM [Suspect]
     Active Substance: PEGFILGRASTIM
     Indication: GRANULOCYTE COUNT DECREASED
     Dosage: 6 MILLIGRAM ON DAY 4 UNTIL RECOVERY OF GRANULOCYTE COUNT
     Route: 058
  8. METHOTREXATE SODIUM. [Suspect]
     Active Substance: METHOTREXATE SODIUM
     Dosage: 200 MILLIGRAM/SQ. METER (CONT. INFUSION OVER 22 HOURS ON DAY 1)
     Route: 042
  9. ARA?C [Suspect]
     Active Substance: CYTARABINE
     Dosage: 500 GRAM PER SQUARE METRE (OVER 3 HOURS TWICE A DAY X 4 DOSES ON DAYS 2 AND 3)
     Route: 042
  10. METHOTREXATE SODIUM. [Suspect]
     Active Substance: METHOTREXATE SODIUM
     Indication: ACUTE LYMPHOCYTIC LEUKAEMIA
     Dosage: 50 MILLIGRAM/SQ. METER (OVER 2HRS ON DAY 1)
     Route: 042
  11. ARA?C [Suspect]
     Active Substance: CYTARABINE
     Indication: ACUTE LYMPHOCYTIC LEUKAEMIA
     Dosage: 0.5 GRAM PER SQUARE METRE (OVER 3 HOURS TWICE A DAY X 4 DOSES ON DAYS 2 AND 3)
     Route: 042
  12. INOTUZUMAB OZOGAMICIN [Suspect]
     Active Substance: INOTUZUMAB OZOGAMICIN
     Dosage: 0.3 MILLIGRAM/SQ. METER (DAY 2 AND 8 OF CYCLE 2 AND 4)
     Route: 042
     Dates: start: 20210520
  13. DEXAMETHASONE. [Suspect]
     Active Substance: DEXAMETHASONE
     Indication: ACUTE LYMPHOCYTIC LEUKAEMIA
     Dosage: 20 MILLIGRAM, QD (4 DAYS ON DAYS 1?4) AND AYS 11?14 (APPROX.)
     Route: 042
  14. INOTUZUMAB OZOGAMICIN [Suspect]
     Active Substance: INOTUZUMAB OZOGAMICIN
     Indication: ACUTE LYMPHOCYTIC LEUKAEMIA
     Dosage: 0.3 MILLIGRAM/SQ. METER (OVER 1 HOUR ON DAYS 2 AND 8 CYCLE 1 AND 3)
     Route: 042
     Dates: start: 20210520

REACTIONS (1)
  - Febrile neutropenia [Recovered/Resolved]

NARRATIVE: CASE EVENT DATE: 20210706
